FAERS Safety Report 8385868-9 (Version None)
Quarter: 2012Q2

REPORT INFORMATION
  Report Type: 
  Country: None (occurrence: None)
  Receive Date: 20120525
  Receipt Date: 20120516
  Transmission Date: 20120825
  Serious: Yes (Other)
  Sender: FDA-Public Use
  Company Number: DE-US-EMD SERONO, INC.-7134305

PATIENT
  Sex: Male
  Weight: 32 kg

DRUGS (2)
  1. SAIZEN [Suspect]
     Indication: GROWTH HORMONE DEFICIENCY
     Route: 058
  2. SAIZEN [Suspect]
     Route: 058
     Dates: start: 20081209, end: 20090407

REACTIONS (1)
  - NEOPLASM PROGRESSION [None]
